FAERS Safety Report 5431538-6 (Version None)
Quarter: 2007Q3

REPORT INFORMATION
  Report Type: 
  Country: None (occurrence: None)
  Receive Date: 20070830
  Receipt Date: 20070816
  Transmission Date: 20080115
  Serious: Yes (Death)
  Sender: FDA-Public Use
  Company Number: JP-JNJFOC-20070803578

PATIENT
  Age: 80 Year
  Sex: Male

DRUGS (21)
  1. FINIBAX [Suspect]
     Indication: PNEUMONIA ASPIRATION
     Route: 041
  2. DUROTEP [Suspect]
     Route: 062
  3. DUROTEP [Suspect]
     Indication: DRUG USE FOR UNKNOWN INDICATION
     Route: 062
  4. PREDONINE [Concomitant]
     Route: 048
  5. CANDESARTAN CILEXETIL [Concomitant]
     Route: 048
  6. LENDORMIN [Concomitant]
     Route: 048
  7. GASMOTIN [Concomitant]
     Route: 048
  8. GASMOTIN [Concomitant]
     Route: 048
  9. TOLEDOMIN [Concomitant]
     Route: 048
  10. FAMOTIDINE [Concomitant]
     Route: 048
  11. DEPAS [Concomitant]
     Route: 048
  12. HARNAL D [Concomitant]
     Route: 048
  13. MAGNESIUM OXIDE [Concomitant]
     Route: 048
  14. VOLTAREN [Concomitant]
     Route: 054
  15. PAXIL [Concomitant]
     Route: 048
  16. PAXIL [Concomitant]
     Route: 048
  17. GRAMALIL [Concomitant]
     Route: 048
  18. LENDORMIN D [Concomitant]
     Route: 065
  19. OPSO [Concomitant]
     Route: 048
  20. ATARAX [Concomitant]
     Route: 048
  21. SERENACE [Concomitant]
     Route: 041

REACTIONS (1)
  - RESPIRATORY FAILURE [None]
